FAERS Safety Report 19169724 (Version 1)
Quarter: 2021Q2

REPORT INFORMATION
  Report Type: Spontaneous
  Country: US (occurrence: US)
  Receive Date: 20210422
  Receipt Date: 20210422
  Transmission Date: 20210717
  Serious: No
  Sender: FDA-Public Use
  Company Number: US-ASTELLAS-2020US042966

PATIENT
  Age: 69 Year
  Sex: Female

DRUGS (4)
  1. LEXISCAN [Suspect]
     Active Substance: REGADENOSON
     Indication: CARDIAC STRESS TEST
     Dosage: UNK UNK, UNKNOWN FREQ. (ONE SYRINGE ONE TIME)
     Route: 065
     Dates: start: 20201203, end: 20201203
  2. LEXISCAN [Suspect]
     Active Substance: REGADENOSON
     Indication: CARDIAC STRESS TEST
     Dosage: UNK UNK, UNKNOWN FREQ. (ONE SYRINGE ONE TIME)
     Route: 065
     Dates: start: 20201203, end: 20201203
  3. LEXISCAN [Suspect]
     Active Substance: REGADENOSON
     Indication: CARDIAC STRESS TEST
     Dosage: UNK UNK, UNKNOWN FREQ. (ONE SYRINGE ONE TIME)
     Route: 065
     Dates: start: 20201203, end: 20201203
  4. LEXISCAN [Suspect]
     Active Substance: REGADENOSON
     Indication: CARDIAC STRESS TEST
     Dosage: UNK UNK, UNKNOWN FREQ. (ONE SYRINGE ONE TIME)
     Route: 065
     Dates: start: 20201203, end: 20201203

REACTIONS (2)
  - Injection site extravasation [Unknown]
  - Injection site discomfort [Unknown]

NARRATIVE: CASE EVENT DATE: 20201203
